FAERS Safety Report 11843974 (Version 1)
Quarter: 2015Q4

REPORT INFORMATION
  Report Type: Spontaneous
  Country: US (occurrence: US)
  Receive Date: 20151217
  Receipt Date: 20151217
  Transmission Date: 20160305
  Serious: Yes (Hospitalization)
  Sender: FDA-Public Use
  Company Number: US-HOSPIRA-3112158

PATIENT
  Age: 66 Year
  Sex: Male

DRUGS (2)
  1. DEXTROSE. [Concomitant]
     Active Substance: DEXTROSE
     Indication: IMMUNE TOLERANCE INDUCTION
     Route: 042
  2. AMIODARONE [Suspect]
     Active Substance: AMIODARONE
     Indication: PRODUCT USED FOR UNKNOWN INDICATION

REACTIONS (1)
  - Dermatitis allergic [Recovered/Resolved]
